FAERS Safety Report 20655764 (Version 1)
Quarter: 2022Q1

REPORT INFORMATION
  Report Type: Spontaneous
  Country: IE (occurrence: IE)
  Receive Date: 20220330
  Receipt Date: 20220330
  Transmission Date: 20220424
  Serious: Yes (Hospitalization)
  Sender: FDA-Public Use
  Company Number: IE-SCIEGENP-2022SCLIT00242

PATIENT
  Age: 6 Month
  Sex: Male

DRUGS (1)
  1. PREGABALIN [Suspect]
     Active Substance: PREGABALIN
     Indication: Product used for unknown indication
     Route: 064

REACTIONS (3)
  - Developmental delay [Recovering/Resolving]
  - Breast feeding [Unknown]
  - Foetal exposure during pregnancy [Unknown]
